FAERS Safety Report 9041399 (Version 1)
Quarter: 2013Q1

REPORT INFORMATION
  Report Type: Report from Study
  Country: US (occurrence: US)
  Receive Date: 20130129
  Receipt Date: 20130129
  Transmission Date: 20140127
  Serious: No
  Sender: FDA-Public Use
  Company Number: US-ABBOTT-12P-163-0901460-00

PATIENT
  Age: 40 Year
  Sex: Female

DRUGS (8)
  1. HUMIRA 40 MG/0.8 ML PEN [Suspect]
     Indication: PSORIASIS
     Dates: start: 201109
  2. HUMIRA 40 MG/0.8 ML PEN [Suspect]
     Indication: CROHN^S DISEASE
  3. ENTOCORT [Concomitant]
     Indication: CROHN^S DISEASE
     Dates: end: 20120207
  4. OMEPRAZOLE [Concomitant]
     Indication: DYSPEPSIA
  5. VITAMIN D [Concomitant]
     Indication: HYPOVITAMINOSIS
     Dosage: DAILY
  6. VITAMIN B12 [Concomitant]
     Indication: HYPOVITAMINOSIS
     Dosage: DAILY
  7. CITRACAL [Concomitant]
     Indication: OSTEOPENIA
  8. ALENDRONATE [Concomitant]
     Indication: OSTEOPENIA
     Dosage: WEEKLY

REACTIONS (2)
  - Abdominal pain [Not Recovered/Not Resolved]
  - Vitamin D decreased [Unknown]
